FAERS Safety Report 21853713 (Version 3)
Quarter: 2023Q1

REPORT INFORMATION
  Report Type: Report from Study
  Country: CH (occurrence: CH)
  Receive Date: 20230112
  Receipt Date: 20230125
  Transmission Date: 20230418
  Serious: Yes (Other)
  Sender: FDA-Public Use
  Company Number: CH-002147023-NVSC2022CH297026

PATIENT
  Sex: Male
  Weight: 50 kg

DRUGS (7)
  1. ADAKVEO [Suspect]
     Active Substance: CRIZANLIZUMAB-TMCA
     Indication: Sickle cell disease
     Dosage: 250 MG, QMO (FIRST INFUSION) (IN SALINE 100ML) (5 MG/KG BW)
     Route: 042
     Dates: start: 20221205, end: 20221205
  2. ADAKVEO [Suspect]
     Active Substance: CRIZANLIZUMAB-TMCA
     Dosage: 250 MG (SECOND INFUSION) (IN SALINE 100ML)
     Route: 042
     Dates: start: 20221219, end: 20221219
  3. HYDROXYUREA [Suspect]
     Active Substance: HYDROXYUREA
     Indication: Sickle cell disease
     Dosage: 1500 MG, QD (MANUAL EXCHANGE TRANSFUSIONS EVERY 2 WEEKS)
     Route: 048
     Dates: start: 2005
  4. CLEMASTINE [Concomitant]
     Active Substance: CLEMASTINE
     Indication: Product used for unknown indication
     Dosage: UNK
     Route: 065
  5. FOLIC ACID [Concomitant]
     Active Substance: FOLIC ACID
     Indication: Erythropoiesis abnormal
     Dosage: 5 MG, QD  (1-0-0)
     Route: 065
  6. CALCIUM [Concomitant]
     Active Substance: CALCIUM
     Indication: Bone metabolism disorder
     Dosage: 500MG/ 1000IE, QD (0-1-0)
     Route: 065
  7. HYDROXYUREA [Concomitant]
     Active Substance: HYDROXYUREA
     Indication: Product used for unknown indication
     Dosage: 500 MG, BID (2-0-1)
     Route: 065
     Dates: start: 2005

REACTIONS (3)
  - Sickle cell anaemia with crisis [Recovered/Resolved]
  - Back pain [Recovered/Resolved]
  - Back pain [Recovered/Resolved]

NARRATIVE: CASE EVENT DATE: 20221205
